FAERS Safety Report 19453893 (Version 2)
Quarter: 2021Q2

REPORT INFORMATION
  Report Type: Spontaneous
  Country: GB (occurrence: GB)
  Receive Date: 20210623
  Receipt Date: 20210625
  Transmission Date: 20210717
  Serious: Yes (Death, Other)
  Sender: FDA-Public Use
  Company Number: GB-ALNYLAM PHARMACEUTICALS, INC.-ALN-2021-001508

PATIENT

DRUGS (1)
  1. ONPATTRO [Suspect]
     Active Substance: PATISIRAN SODIUM
     Indication: AMYLOIDOSIS
     Dosage: 24 MILLIGRAM, Q3W, FROM A 250ML BAG OF SODIUM CHLORIDE 0.9% REMOVE 62ML, THEN ADD 12ML OF PATISIRAN
     Route: 042
     Dates: start: 20200824

REACTIONS (1)
  - Death [Fatal]
